FAERS Safety Report 21531290 (Version 1)
Quarter: 2022Q4

REPORT INFORMATION
  Report Type: Spontaneous
  Country: US (occurrence: None)
  Receive Date: 20221028
  Receipt Date: 20221028
  Transmission Date: 20230112
  Serious: No
  Sender: FDA-Public Use
  Company Number: None

PATIENT
  Age: 84 Year
  Sex: Male

DRUGS (8)
  1. ABIRATERONE [Suspect]
     Active Substance: ABIRATERONE
     Indication: Prostate cancer
     Dosage: FREQUENCY : DAILY;?
     Route: 048
  2. PREDNISONE [Suspect]
     Active Substance: PREDNISONE
     Indication: Prostate cancer
     Dosage: FREQUENCY : DAILY;?
     Route: 048
  3. ALLOPURINOL [Concomitant]
     Active Substance: ALLOPURINOL
  4. BENAZEPRIL [Concomitant]
     Active Substance: BENAZEPRIL HYDROCHLORIDE
  5. LUPRON [Concomitant]
     Active Substance: LEUPROLIDE ACETATE
  6. ROSUVASTATIN [Concomitant]
     Active Substance: ROSUVASTATIN
  7. ASPIRIN [Concomitant]
     Active Substance: ASPIRIN
  8. XGEVA [Concomitant]
     Active Substance: DENOSUMAB

REACTIONS (3)
  - Disease progression [None]
  - Drug ineffective [None]
  - Prostatic specific antigen increased [None]
